FAERS Safety Report 10020955 (Version 1)
Quarter: 2014Q1

REPORT INFORMATION
  Report Type: Report from Study
  Country: CA (occurrence: CA)
  Receive Date: 20140319
  Receipt Date: 20140319
  Transmission Date: 20141002
  Serious: Yes (Other)
  Sender: FDA-Public Use
  Company Number: CA-JNJFOC-20140308965

PATIENT
  Age: 38 Year
  Sex: Male
  Weight: 112 kg

DRUGS (5)
  1. REMICADE [Suspect]
     Indication: PSORIASIS
     Route: 042
     Dates: start: 20090101
  2. VICTOZA [Concomitant]
     Route: 065
  3. DIAMICRON [Concomitant]
     Route: 065
  4. RAMIPRIL [Concomitant]
     Route: 065
  5. METFORMIN [Concomitant]
     Route: 065

REACTIONS (4)
  - Migraine with aura [Recovered/Resolved]
  - Nasopharyngitis [Recovered/Resolved]
  - Sinus congestion [Recovered/Resolved]
  - Malaise [Recovered/Resolved]
